FAERS Safety Report 7093469-8 (Version None)
Quarter: 2010Q4

REPORT INFORMATION
  Report Type: 
  Country: None (occurrence: None)
  Receive Date: 20101102
  Receipt Date: 20101015
  Transmission Date: 20110411
  Serious: Yes (Hospitalization, Other)
  Sender: FDA-Public Use
  Company Number: JPI-P-012107

PATIENT
  Age: 48 Year
  Sex: Female
  Weight: 90.7194 kg

DRUGS (15)
  1. XYREM [Suspect]
     Indication: CATAPLEXY
     Dosage: SEE IMAGE
     Route: 048
     Dates: start: 20090111, end: 20090101
  2. XYREM [Suspect]
     Indication: CATAPLEXY
     Dosage: SEE IMAGE
     Route: 048
     Dates: start: 20090101, end: 20090122
  3. XYREM [Suspect]
     Indication: CATAPLEXY
     Dosage: SEE IMAGE
     Route: 048
     Dates: start: 20090123, end: 20090124
  4. XYREM [Suspect]
     Indication: CATAPLEXY
     Dosage: SEE IMAGE
     Route: 048
     Dates: start: 20100701, end: 20100101
  5. XYREM [Suspect]
     Indication: CATAPLEXY
     Dosage: SEE IMAGE
     Route: 048
     Dates: start: 20090125, end: 20100125
  6. XYREM [Suspect]
     Indication: CATAPLEXY
     Dosage: SEE IMAGE
     Route: 048
     Dates: start: 20090126
  7. XYREM [Suspect]
     Indication: CATAPLEXY
     Dosage: SEE IMAGE
     Route: 048
     Dates: start: 20100101
  8. OLANZAPINE [Suspect]
     Indication: DELUSION
     Dates: start: 20100701
  9. ARMODAFINIL [Suspect]
     Indication: PRODUCT USED FOR UNKNOWN INDICATION
  10. METHAMPHETAMINE HYDROCHLORIDE [Concomitant]
  11. CARVEDILOL [Concomitant]
  12. CLONAZEPAM [Concomitant]
  13. LORAZEPAM [Concomitant]
  14. IBUPROFEN [Concomitant]
  15. SERTRALINE HYDROCHLORIDE [Concomitant]

REACTIONS (41)
  - ABDOMINAL PAIN [None]
  - BACTERIAL INFECTION [None]
  - BLINDNESS [None]
  - CANDIDIASIS [None]
  - CATAPLEXY [None]
  - CELLULITIS [None]
  - CHILLS [None]
  - CRYING [None]
  - DELUSION [None]
  - FALL [None]
  - FEELING ABNORMAL [None]
  - FEELING HOT [None]
  - FEMALE GENITAL TRACT FISTULA [None]
  - HEADACHE [None]
  - HEART RATE INCREASED [None]
  - HORDEOLUM [None]
  - HYPERHIDROSIS [None]
  - INSOMNIA [None]
  - MICTURITION URGENCY [None]
  - MIDDLE INSOMNIA [None]
  - MUSCLE TWITCHING [None]
  - NAUSEA [None]
  - OEDEMA PERIPHERAL [None]
  - ORAL CANDIDIASIS [None]
  - PARAESTHESIA [None]
  - PERIPHERAL COLDNESS [None]
  - PSYCHOTIC DISORDER [None]
  - REFUSAL OF TREATMENT BY PATIENT [None]
  - SKIN BURNING SENSATION [None]
  - SKIN ODOUR ABNORMAL [None]
  - SKIN ULCER [None]
  - SOMNOLENCE [None]
  - STAPHYLOCOCCAL INFECTION [None]
  - THERAPEUTIC RESPONSE DECREASED [None]
  - THIRST [None]
  - THROAT IRRITATION [None]
  - URINE OUTPUT INCREASED [None]
  - URTICARIA [None]
  - VAGINAL PROLAPSE [None]
  - VOMITING [None]
  - WEIGHT INCREASED [None]
